FAERS Safety Report 7207566-7 (Version None)
Quarter: 2011Q1

REPORT INFORMATION
  Report Type: 
  Country: None (occurrence: None)
  Receive Date: 20110103
  Receipt Date: 20101228
  Transmission Date: 20110831
  Serious: Yes (Hospitalization)
  Sender: FDA-Public Use
  Company Number: HR-GENZYME-CAMP-1001208

PATIENT
  Sex: Female
  Weight: 67 kg

DRUGS (3)
  1. ALEMTUZUMAB [Suspect]
     Dosage: UNK UNK, QDX3
     Route: 042
     Dates: start: 20050128, end: 20050130
  2. ALEMTUZUMAB [Suspect]
     Indication: MULTIPLE SCLEROSIS
     Dosage: UNK UNK, QDX5
     Route: 042
     Dates: start: 20040112, end: 20040116
  3. EUTHYROX [Concomitant]
     Indication: PRODUCT USED FOR UNKNOWN INDICATION
     Dosage: 50 MCG, QD
     Route: 048
     Dates: start: 20101201

REACTIONS (1)
  - VAGINAL HAEMORRHAGE [None]
